FAERS Safety Report 18601108 (Version 1)
Quarter: 2020Q4

REPORT INFORMATION
  Report Type: Spontaneous
  Country: US (occurrence: US)
  Receive Date: 20201210
  Receipt Date: 20201210
  Transmission Date: 20210114
  Serious: Yes (Hospitalization)
  Sender: FDA-Public Use
  Company Number: US-MYLANLABS-2020M1101492

PATIENT
  Age: 3 Year
  Sex: Male

DRUGS (1)
  1. CAPECITABINE. [Suspect]
     Active Substance: CAPECITABINE
     Indication: PRODUCT USED FOR UNKNOWN INDICATION
     Dosage: 500MG CAPECITABINE TABLETS..
     Route: 048

REACTIONS (3)
  - Vomiting [Recovered/Resolved]
  - Accidental exposure to product by child [Recovered/Resolved]
  - Diarrhoea [Recovered/Resolved]
